FAERS Safety Report 15625021 (Version 3)
Quarter: 2018Q4

REPORT INFORMATION
  Report Type: Spontaneous
  Country: US (occurrence: US)
  Receive Date: 20181116
  Receipt Date: 20181227
  Transmission Date: 20190205
  Serious: No
  Sender: FDA-Public Use
  Company Number: US-UNITED THERAPEUTICS-UNT-2018-018698

PATIENT
  Age: 71 Year
  Sex: Female
  Weight: 98.87 kg

DRUGS (4)
  1. REMODULIN [Suspect]
     Active Substance: TREPROSTINIL
     Indication: PULMONARY ARTERIAL HYPERTENSION
     Dosage: 0.076 ?G/KG, CONTINUING
     Route: 058
     Dates: start: 20120109
  2. OPSUMIT [Concomitant]
     Active Substance: MACITENTAN
     Indication: PRODUCT USED FOR UNKNOWN INDICATION
     Route: 065
  3. REMODULIN [Suspect]
     Active Substance: TREPROSTINIL
     Dosage: 0.079 ?G/KG, CONTINUING
     Route: 058
  4. TRACLEER [Concomitant]
     Active Substance: BOSENTAN
     Indication: PRODUCT USED FOR UNKNOWN INDICATION
     Route: 065

REACTIONS (7)
  - Infusion site erythema [Unknown]
  - Infusion site discharge [Unknown]
  - Fluid retention [Unknown]
  - Infusion site swelling [Unknown]
  - Walking distance test abnormal [Unknown]
  - Emotional disorder [Unknown]
  - Infusion site pain [Unknown]

NARRATIVE: CASE EVENT DATE: 2018
